FAERS Safety Report 21799787 (Version 1)
Quarter: 2022Q4

REPORT INFORMATION
  Report Type: Spontaneous
  Country: GB (occurrence: GB)
  Receive Date: 20221230
  Receipt Date: 20221230
  Transmission Date: 20230113
  Serious: Yes (Hospitalization, Other)
  Sender: FDA-Public Use
  Company Number: GB-GSK-GB2022GSK191026

PATIENT

DRUGS (3)
  1. DOLUTEGRAVIR [Suspect]
     Active Substance: DOLUTEGRAVIR
     Indication: HIV infection
     Dosage: UNK
  2. ABACAVIR [Suspect]
     Active Substance: ABACAVIR
     Indication: HIV infection
     Dosage: UNK
  3. LAMIVUDINE [Suspect]
     Active Substance: LAMIVUDINE
     Indication: HIV infection
     Dosage: UNK

REACTIONS (19)
  - Progressive multifocal leukoencephalopathy [Recovering/Resolving]
  - Immune reconstitution inflammatory syndrome [Recovering/Resolving]
  - Speech disorder [Recovering/Resolving]
  - Memory impairment [Recovering/Resolving]
  - Condition aggravated [Recovering/Resolving]
  - Muscular weakness [Recovering/Resolving]
  - Muscle spasticity [Recovering/Resolving]
  - White matter lesion [Recovering/Resolving]
  - Brain oedema [Recovering/Resolving]
  - General physical health deterioration [Recovering/Resolving]
  - Movement disorder [Recovering/Resolving]
  - Dysphagia [Recovered/Resolved]
  - Partial seizures [Recovering/Resolving]
  - Hemiparesis [Recovering/Resolving]
  - Hemiplegia [Recovering/Resolving]
  - Aphasia [Recovering/Resolving]
  - Apraxia [Recovering/Resolving]
  - Pneumonia aspiration [Recovering/Resolving]
  - Unmasking of previously unidentified disease [Recovering/Resolving]
